FAERS Safety Report 5383290-0 (Version None)
Quarter: 2007Q3

REPORT INFORMATION
  Report Type: 
  Country: None (occurrence: None)
  Receive Date: 20070710
  Receipt Date: 20070629
  Transmission Date: 20080115
  Serious: Yes (Other)
  Sender: FDA-Public Use
  Company Number: NL-PFIZER INC-2007050258

PATIENT
  Sex: Female
  Weight: 74 kg

DRUGS (3)
  1. LYRICA [Suspect]
     Indication: POLYNEUROPATHY
     Route: 048
     Dates: start: 20070317, end: 20070318
  2. HYDROCORTISONE [Concomitant]
  3. THYRAX [Concomitant]

REACTIONS (3)
  - ABASIA [None]
  - MUTISM [None]
  - SOMNOLENCE [None]
